FAERS Safety Report 5239177-7 (Version None)
Quarter: 2007Q1

REPORT INFORMATION
  Report Type: 
  Country: None (occurrence: None)
  Receive Date: 20070212
  Receipt Date: 20070131
  Transmission Date: 20070707
  Serious: Yes (Hospitalization)
  Sender: FDA-Public Use
  Company Number: T06-JPN-05422-01

PATIENT
  Age: 80 Year
  Sex: Female
  Weight: 39 kg

DRUGS (4)
  1. MEMANTINE HCL [Suspect]
     Indication: DEMENTIA ALZHEIMER'S TYPE
     Dosage: 15 MG QD PO
     Route: 048
     Dates: start: 20061019, end: 20061115
  2. SCOPOLAMINE BUTYLBROMIDE [Concomitant]
  3. FAMOTIDINE [Concomitant]
  4. REBAMIPIDE [Concomitant]

REACTIONS (4)
  - BEDRIDDEN [None]
  - CONDITION AGGRAVATED [None]
  - DEMENTIA ALZHEIMER'S TYPE [None]
  - GENERAL PHYSICAL HEALTH DETERIORATION [None]
